FAERS Safety Report 5988421-7 (Version None)
Quarter: 2008Q4

REPORT INFORMATION
  Report Type: 
  Country: None (occurrence: None)
  Receive Date: 20081210
  Receipt Date: 20081201
  Transmission Date: 20090506
  Serious: Yes (Hospitalization, Other)
  Sender: FDA-Public Use
  Company Number: JP-AVENTIS-200813215JP

PATIENT
  Age: 65 Year
  Sex: Male
  Weight: 42 kg

DRUGS (12)
  1. ALLEGRA [Suspect]
     Dosage: DOSE: 60 MG
     Route: 048
     Dates: start: 20080812
  2. ALLEGRA [Suspect]
     Dosage: DOSE: 60 MG
     Route: 048
  3. ALLEGRA [Suspect]
     Indication: ECZEMA
     Dosage: DOSE: 60 MG
     Route: 048
     Dates: start: 20080812
  4. ALLEGRA [Suspect]
     Dosage: DOSE: 60 MG
     Route: 048
  5. ALEVIATIN [Concomitant]
     Indication: EPILEPSY
  6. ALEVIATIN [Concomitant]
     Indication: SUBARACHNOID HAEMORRHAGE
  7. GASTER D [Concomitant]
  8. PURSENNID                          /00571901/ [Concomitant]
     Indication: CONSTIPATION
  9. HARNAL [Concomitant]
  10. HARNAL [Concomitant]
  11. SOLCILLIN                          /00000501/ [Concomitant]
  12. SELBEX [Concomitant]

REACTIONS (1)
  - URINARY RETENTION [None]
